FAERS Safety Report 7167150-0 (Version None)
Quarter: 2010Q4

REPORT INFORMATION
  Report Type: 
  Country: None (occurrence: None)
  Receive Date: 20101216
  Receipt Date: 20101207
  Transmission Date: 20110411
  Serious: Yes (Hospitalization)
  Sender: FDA-Public Use
  Company Number: GXKR2010IT13829

PATIENT
  Age: 60 Year
  Sex: Male

DRUGS (6)
  1. FLUPHENAZINE (NGX) [Suspect]
     Indication: DEPRESSION
     Dosage: 4 MG, BID
     Route: 048
  2. AMITRIPTYLINE (NGX) [Suspect]
     Indication: DEPRESSION
     Dosage: 25MG/DAY
     Route: 048
  3. AMITRIPTYLINE (NGX) [Suspect]
     Dosage: 50 MG/DAY
     Route: 048
  4. CISPLATIN [Suspect]
     Indication: CHEMOTHERAPY
     Dosage: 100 MG/M2, Q48H
  5. HYDROCHLOROTHIAZIDE [Concomitant]
     Dosage: 25 MG/DAY
     Route: 048
  6. DOXORUBICIN [Concomitant]

REACTIONS (12)
  - AUTOMATISM [None]
  - BLOOD POTASSIUM DECREASED [None]
  - CEREBRAL ISCHAEMIA [None]
  - COMA [None]
  - CONFUSIONAL STATE [None]
  - DISORIENTATION [None]
  - HYPERVENTILATION [None]
  - HYPONATRAEMIA [None]
  - INAPPROPRIATE ANTIDIURETIC HORMONE SECRETION [None]
  - MALAISE [None]
  - RESPIRATORY ALKALOSIS [None]
  - SPINDLE CELL SARCOMA [None]
